FAERS Safety Report 9135860 (Version 1)
Quarter: 2013Q1

REPORT INFORMATION
  Report Type: Spontaneous
  Country: US (occurrence: US)
  Receive Date: 20130304
  Receipt Date: 20130304
  Transmission Date: 20140127
  Serious: No
  Sender: FDA-Public Use
  Company Number: US-ABBOTT-12P-163-0918733-00

PATIENT
  Sex: Male

DRUGS (5)
  1. ANDROGEL 1% [Suspect]
     Indication: BLOOD TESTOSTERONE DECREASED
     Route: 061
     Dates: start: 2009, end: 201202
  2. ANDROGEL 1% [Suspect]
     Route: 061
     Dates: start: 201202
  3. SIMVASTATIN [Concomitant]
     Indication: BLOOD CHOLESTEROL INCREASED
     Dosage: NOT REPORTED
  4. ASPIRIN [Concomitant]
     Indication: PRODUCT USED FOR UNKNOWN INDICATION
  5. AMBIEN [Concomitant]
     Indication: INSOMNIA

REACTIONS (3)
  - Blood testosterone decreased [Unknown]
  - Benign prostatic hyperplasia [Unknown]
  - Drug administered at inappropriate site [Unknown]
